FAERS Safety Report 9636350 (Version 1)
Quarter: 2013Q4

REPORT INFORMATION
  Report Type: Spontaneous
  Country: IT (occurrence: IT)
  Receive Date: 20131021
  Receipt Date: 20131021
  Transmission Date: 20140711
  Serious: Yes (Hospitalization)
  Sender: FDA-Public Use
  Company Number: IT-ROXANE LABORATORIES, INC.-2013-RO-01701RO

PATIENT
  Age: 42 Year
  Sex: Female

DRUGS (3)
  1. IRBESARTAN [Suspect]
     Indication: HYPERTENSION
     Dosage: 150 MG
     Route: 048
  2. GESTODENE / 17 ALPHA-ETHINYLESTRADIOL [Suspect]
     Indication: ORAL CONTRACEPTION
     Route: 048
  3. MATCHA GREEN TEA [Suspect]
     Dosage: EVERY OTHER DAY FOR 10 DAYS
     Route: 048

REACTIONS (1)
  - Autoimmune hepatitis [Recovered/Resolved]
